FAERS Safety Report 8179564-0 (Version None)
Quarter: 2012Q1

REPORT INFORMATION
  Report Type: 
  Country: None (occurrence: None)
  Receive Date: 20120229
  Receipt Date: 20120219
  Transmission Date: 20120608
  Serious: Yes (Other)
  Sender: FDA-Public Use
  Company Number: 2012SA012120

PATIENT
  Sex: Female

DRUGS (1)
  1. ICY HOT POWER GEL [Suspect]
     Dosage: UNKNOWN
     Dates: start: 20120216

REACTIONS (3)
  - SKIN EXFOLIATION [None]
  - BLISTER [None]
  - THERMAL BURN [None]
